FAERS Safety Report 7602552-7 (Version None)
Quarter: 2011Q3

REPORT INFORMATION
  Report Type: 
  Country: None (occurrence: None)
  Receive Date: 20110701
  Receipt Date: 20100913
  Transmission Date: 20111222
  Serious: Yes (Other)
  Sender: FDA-Public Use
  Company Number: SIM_00013_2011

PATIENT
  Age: 25 Year
  Sex: Male

DRUGS (1)
  1. DRY EYE RELIEF (HOMEOPATHIC) [Suspect]
     Indication: EYE PENETRATION
     Dosage: (2 GT, AS NEEDED OPHTHALMIC)
     Route: 047
     Dates: start: 20100909, end: 20100910

REACTIONS (2)
  - RASH [None]
  - DYSPNOEA [None]
